FAERS Safety Report 21508107 (Version 2)
Quarter: 2022Q4

REPORT INFORMATION
  Report Type: Spontaneous
  Country: US (occurrence: US)
  Receive Date: 20221026
  Receipt Date: 20221208
  Transmission Date: 20230113
  Serious: Yes (Death)
  Sender: FDA-Public Use
  Company Number: US-G1 THERAPEUTICS-2022G1US0000240

PATIENT

DRUGS (5)
  1. COSELA [Suspect]
     Active Substance: TRILACICLIB DIHYDROCHLORIDE
     Indication: Product used for unknown indication
     Dosage: 300 MG IV SOLUTION, 1.0 MG VIA INJECTION
     Route: 042
     Dates: start: 20220325, end: 20220325
  2. COSELA [Suspect]
     Active Substance: TRILACICLIB DIHYDROCHLORIDE
     Dosage: 300 MG IV SOLUTION, 1.0 MG VIA INJECTION
     Route: 042
     Dates: start: 20220328, end: 20220328
  3. COSELA [Suspect]
     Active Substance: TRILACICLIB DIHYDROCHLORIDE
     Dosage: 300 MG IV SOLUTION, 1.0 MG VIA INJECTION
     Route: 042
     Dates: start: 20220414, end: 20220415
  4. COSELA [Suspect]
     Active Substance: TRILACICLIB DIHYDROCHLORIDE
     Dosage: 300 MG IV SOLUTION, 1.0 MG VIA INJECTION
     Route: 042
     Dates: start: 20220505, end: 20220506
  5. COSELA [Suspect]
     Active Substance: TRILACICLIB DIHYDROCHLORIDE
     Dosage: 300 MG IV SOLUTION, 1.0 MG VIA INJECTION
     Route: 042
     Dates: start: 20220526, end: 20220527

REACTIONS (1)
  - Death [Fatal]

NARRATIVE: CASE EVENT DATE: 20220812
